FAERS Safety Report 12212835 (Version 2)
Quarter: 2016Q2

REPORT INFORMATION
  Report Type: Report from Study
  Country: BE (occurrence: BE)
  Receive Date: 20160328
  Receipt Date: 20160427
  Transmission Date: 20160815
  Serious: Yes (Hospitalization)
  Sender: FDA-Public Use
  Company Number: BE-ROCHE-1527844

PATIENT
  Age: 65 Year
  Sex: Female

DRUGS (29)
  1. METHOTREXATE [Concomitant]
     Active Substance: METHOTREXATE
     Route: 048
     Dates: start: 20131105, end: 20140602
  2. AIRTAL [Concomitant]
     Active Substance: ACECLOFENAC
     Indication: RHEUMATOID ARTHRITIS
     Route: 048
     Dates: start: 20110912, end: 20130702
  3. AIRTAL [Concomitant]
     Active Substance: ACECLOFENAC
     Route: 048
     Dates: start: 20130702
  4. DAFALGAN [Concomitant]
     Active Substance: ACETAMINOPHEN
     Indication: RHEUMATOID ARTHRITIS
     Route: 048
  5. RHINOSPRAY [Concomitant]
     Active Substance: TRAMAZOLINE HYDROCHLORIDE
     Dosage: ROUTE: INHALED
     Route: 065
     Dates: start: 20130218, end: 20130607
  6. NEOBACITRACINE OINTMENT [Concomitant]
     Route: 061
     Dates: start: 20130515, end: 20130526
  7. BEFACT FORTE [Concomitant]
     Indication: FATIGUE
     Route: 048
     Dates: start: 20130515, end: 20130615
  8. METHOTREXATE [Concomitant]
     Active Substance: METHOTREXATE
     Route: 048
     Dates: start: 20130122, end: 20130318
  9. METHOTREXATE [Concomitant]
     Active Substance: METHOTREXATE
     Route: 048
     Dates: start: 20150715
  10. CALCIUM CARBONATE. [Concomitant]
     Active Substance: CALCIUM CARBONATE
     Route: 048
     Dates: start: 20110912
  11. NOBITEN [Concomitant]
     Active Substance: NEBIVOLOL
     Indication: HYPERTENSION
     Route: 048
     Dates: end: 20120901
  12. AMLODIPINE [Concomitant]
     Active Substance: AMLODIPINE BESYLATE
     Indication: HYPERTENSION
     Route: 048
     Dates: start: 20120902
  13. AMLODIPINE [Concomitant]
     Active Substance: AMLODIPINE BESYLATE
     Route: 048
     Dates: start: 20140811
  14. AVAMYS [Concomitant]
     Active Substance: FLUTICASONE FUROATE
     Dosage: ROUTE INHALED
     Route: 065
     Dates: start: 20130318, end: 20140601
  15. METHOTREXATE [Concomitant]
     Active Substance: METHOTREXATE
     Route: 048
     Dates: start: 20130319, end: 20130702
  16. METHOTREXATE [Concomitant]
     Active Substance: METHOTREXATE
     Route: 048
     Dates: start: 20130702, end: 20131105
  17. CLONAZONE [Concomitant]
     Dosage: FORM SOLUTION
     Route: 061
     Dates: start: 20130819, end: 20130923
  18. METHOTREXATE [Concomitant]
     Active Substance: METHOTREXATE
     Indication: RHEUMATOID ARTHRITIS
     Route: 048
     Dates: start: 20110912, end: 20130121
  19. METHOTREXATE [Concomitant]
     Active Substance: METHOTREXATE
     Route: 048
     Dates: start: 20140603
  20. TOCILIZUMAB [Suspect]
     Active Substance: TOCILIZUMAB
     Indication: RHEUMATOID ARTHRITIS
     Dosage: LAST DOSE PRIOR TO SAE: 18/DEC/2014
     Route: 042
     Dates: end: 20150210
  21. FOLIC ACID. [Concomitant]
     Active Substance: FOLIC ACID
     Route: 048
     Dates: start: 20110912
  22. AMLOR [Concomitant]
     Active Substance: AMLODIPINE BESYLATE
     Indication: HYPERTENSION
     Route: 048
     Dates: start: 20111031, end: 20120123
  23. REFRESH OPTIVE [Concomitant]
     Active Substance: CARBOXYMETHYLCELLULOSE SODIUM\GLYCERIN
     Dosage: FORM LIQUID
     Route: 047
     Dates: start: 2013, end: 20130923
  24. MEDROL [Concomitant]
     Active Substance: METHYLPREDNISOLONE
     Indication: RHEUMATOID ARTHRITIS
     Route: 048
     Dates: start: 20150715
  25. D-CURE [Concomitant]
     Dosage: DOSE 25000 UNIT SOLUTION
     Route: 048
     Dates: start: 20110912
  26. PANTOMED (BELGIUM) [Concomitant]
     Route: 048
  27. VOLTAREN [Concomitant]
     Active Substance: DICLOFENAC SODIUM
     Indication: RHEUMATOID ARTHRITIS
     Route: 061
     Dates: start: 2013, end: 20130607
  28. TRIAMCINOLONE [Concomitant]
     Active Substance: TRIAMCINOLONE
     Dosage: SINGLE DOSE
     Route: 013
     Dates: start: 20150403, end: 20150403
  29. BROMAZEPAM [Concomitant]
     Active Substance: BROMAZEPAM
     Indication: ANXIETY
     Route: 048

REACTIONS (2)
  - Diverticular perforation [Recovered/Resolved]
  - Peritonitis [Recovered/Resolved with Sequelae]

NARRATIVE: CASE EVENT DATE: 20150126
